FAERS Safety Report 10435081 (Version 1)
Quarter: 2014Q3

REPORT INFORMATION
  Report Type: Spontaneous
  Country: US (occurrence: None)
  Receive Date: 20140815
  Receipt Date: 20140815
  Transmission Date: 20150326
  Serious: No
  Sender: FDA-Public Use
  Company Number: 2014TUS003190

PATIENT
  Sex: Female

DRUGS (5)
  1. CYMBALTA [Concomitant]
     Active Substance: DULOXETINE HYDROCHLORIDE
  2. BRINTELLIX [Suspect]
     Active Substance: VORTIOXETINE HYDROBROMIDE
     Indication: MAJOR DEPRESSION
     Route: 048
     Dates: start: 20140326, end: 20140418
  3. ADDERALL XR (AMFETAMINE ASPARTATE, AMFETAMINE SULFATE, DEXMFETAMINE SACCHARATE, DEXAMETAMINE SULFATE) [Concomitant]
  4. TRILEPTAL (OXACARBAZEPINE) [Concomitant]
  5. LAMOTRIGINE. [Concomitant]
     Active Substance: LAMOTRIGINE

REACTIONS (3)
  - Vertigo [None]
  - Dizziness [None]
  - Headache [None]
